FAERS Safety Report 20759374 (Version 1)
Quarter: 2022Q2

REPORT INFORMATION
  Report Type: Spontaneous
  Country: US (occurrence: US)
  Receive Date: 20220427
  Receipt Date: 20220427
  Transmission Date: 20220721
  Serious: No
  Sender: FDA-Public Use
  Company Number: US-BioHaven Pharmaceuticals-2022BHV000247

PATIENT
  Age: 49 Year
  Sex: Female

DRUGS (1)
  1. NURTEC ODT [Suspect]
     Active Substance: RIMEGEPANT SULFATE
     Indication: Migraine
     Dosage: X 2 DOSES; 2ND DOSE WAS TAKEN ON 26-JAN-2022
     Route: 048

REACTIONS (1)
  - Dysgeusia [Not Recovered/Not Resolved]
